FAERS Safety Report 4730211-7 (Version None)
Quarter: 2005Q3

REPORT INFORMATION
  Report Type: 
  Country: None (occurrence: None)
  Receive Date: 20050801
  Receipt Date: 20050331
  Transmission Date: 20060218
  Serious: Yes (Death, Hospitalization)
  Sender: FDA-Public Use
  Company Number: 2005AP01965

PATIENT
  Age: 24289 Day
  Sex: Male

DRUGS (7)
  1. IRESSA [Suspect]
     Indication: NON-SMALL CELL LUNG CANCER
     Route: 048
     Dates: start: 20050307, end: 20050327
  2. IRESSA [Suspect]
     Indication: LUNG SQUAMOUS CELL CARCINOMA STAGE UNSPECIFIED
     Route: 048
     Dates: start: 20050307, end: 20050327
  3. AMINOMETHYLBENZOIC ACID [Concomitant]
     Indication: HAEMOPTYSIS
     Route: 042
     Dates: start: 20050324, end: 20050326
  4. LEVOFLOXACIN [Concomitant]
     Indication: HAEMOPTYSIS
     Route: 042
     Dates: start: 20050324, end: 20050326
  5. DEXAMETHASONE [Concomitant]
     Indication: DYSPNOEA
     Route: 042
     Dates: start: 20050324, end: 20050326
  6. CECLOR [Concomitant]
     Indication: COUGH
     Route: 048
     Dates: start: 20050302, end: 20050305
  7. ZHEN QI FU ZHEN [Concomitant]
     Dates: start: 20050205, end: 20050303

REACTIONS (5)
  - ASTHENIA [None]
  - HEPATITIS [None]
  - HEPATOMEGALY [None]
  - LIVER FUNCTION TEST ABNORMAL [None]
  - PRURITUS [None]
